FAERS Safety Report 8464057-3 (Version None)
Quarter: 2012Q2

REPORT INFORMATION
  Report Type: 
  Country: None (occurrence: None)
  Receive Date: 20120625
  Receipt Date: 20120614
  Transmission Date: 20120825
  Serious: Yes (Other)
  Sender: FDA-Public Use
  Company Number: US-ASTRAZENECA-2010SE58505

PATIENT
  Age: 91 Year
  Sex: Female

DRUGS (1)
  1. TOPROL-XL [Suspect]
     Route: 048

REACTIONS (8)
  - BRONCHITIS [None]
  - CONTUSION [None]
  - ABASIA [None]
  - NASOPHARYNGITIS [None]
  - EMPHYSEMA [None]
  - MALAISE [None]
  - INTERVERTEBRAL DISC DISPLACEMENT [None]
  - BACK INJURY [None]
